FAERS Safety Report 25439360 (Version 4)
Quarter: 2025Q3

REPORT INFORMATION
  Report Type: Spontaneous
  Country: CA (occurrence: CA)
  Receive Date: 20250616
  Receipt Date: 20250918
  Transmission Date: 20251021
  Serious: Yes (Life-Threatening, Disabling, Other)
  Sender: Haleon PLC
  Company Number: CA-GLAXOSMITHKLINE-CACH2023AMR057132

PATIENT
  Age: 43 Year
  Sex: Female
  Weight: 68 kg

DRUGS (306)
  1. VOLTAREN [Suspect]
     Active Substance: DICLOFENAC SODIUM
     Indication: Product used for unknown indication
  2. VOLTAREN [Suspect]
     Active Substance: DICLOFENAC SODIUM
  3. VOLTAREN [Suspect]
     Active Substance: DICLOFENAC SODIUM
  4. DICLOFENAC SODIUM [Suspect]
     Active Substance: DICLOFENAC SODIUM
     Indication: Product used for unknown indication
  5. DICLOFENAC SODIUM [Suspect]
     Active Substance: DICLOFENAC SODIUM
  6. GOLIMUMAB [Suspect]
     Active Substance: GOLIMUMAB
     Indication: Prostatic specific antigen
     Route: 050
  7. GOLIMUMAB [Suspect]
     Active Substance: GOLIMUMAB
     Indication: Rheumatoid arthritis
     Route: 058
  8. GOLIMUMAB [Suspect]
     Active Substance: GOLIMUMAB
  9. GOLIMUMAB [Suspect]
     Active Substance: GOLIMUMAB
  10. GOLIMUMAB [Suspect]
     Active Substance: GOLIMUMAB
  11. GOLIMUMAB [Suspect]
     Active Substance: GOLIMUMAB
  12. GOLIMUMAB [Suspect]
     Active Substance: GOLIMUMAB
  13. GOLIMUMAB [Suspect]
     Active Substance: GOLIMUMAB
  14. CHOLECALCIFEROL [Suspect]
     Active Substance: CHOLECALCIFEROL
     Indication: Product used for unknown indication
  15. CHOLECALCIFEROL [Suspect]
     Active Substance: CHOLECALCIFEROL
  16. SIMPONI [Suspect]
     Active Substance: GOLIMUMAB
     Indication: Rheumatoid arthritis
     Route: 050
  17. SIMPONI [Suspect]
     Active Substance: GOLIMUMAB
     Route: 058
  18. COSENTYX [Suspect]
     Active Substance: SECUKINUMAB
     Indication: Product used for unknown indication
  19. DICLOFENAC POTASSIUM [Suspect]
     Active Substance: DICLOFENAC POTASSIUM
     Indication: Product used for unknown indication
  20. ARAVA [Suspect]
     Active Substance: LEFLUNOMIDE
     Indication: Rheumatoid arthritis
     Route: 048
  21. PREDNISONE [Suspect]
     Active Substance: PREDNISONE
     Indication: Rheumatoid arthritis
     Route: 050
  22. PREDNISONE [Suspect]
     Active Substance: PREDNISONE
  23. PREDNISONE [Suspect]
     Active Substance: PREDNISONE
  24. PREDNISONE [Suspect]
     Active Substance: PREDNISONE
  25. PREDNISONE [Suspect]
     Active Substance: PREDNISONE
     Route: 050
  26. FOLIC ACID [Suspect]
     Active Substance: FOLIC ACID
     Indication: Rheumatoid arthritis
  27. FOLIC ACID [Suspect]
     Active Substance: FOLIC ACID
     Route: 048
  28. FOLIC ACID [Suspect]
     Active Substance: FOLIC ACID
  29. FOLIC ACID [Suspect]
     Active Substance: FOLIC ACID
  30. FOLIC ACID [Suspect]
     Active Substance: FOLIC ACID
     Route: 048
  31. FOLIC ACID [Suspect]
     Active Substance: FOLIC ACID
     Route: 048
  32. FOLIC ACID [Suspect]
     Active Substance: FOLIC ACID
     Route: 048
  33. FOLIC ACID [Suspect]
     Active Substance: FOLIC ACID
  34. STELARA [Suspect]
     Active Substance: USTEKINUMAB
     Indication: Product used for unknown indication
     Route: 050
  35. STELARA [Suspect]
     Active Substance: USTEKINUMAB
     Route: 058
  36. LEFLUNOMIDE [Suspect]
     Active Substance: LEFLUNOMIDE
     Indication: Rheumatoid arthritis
     Dosage: 10 MG, QD
  37. LEFLUNOMIDE [Suspect]
     Active Substance: LEFLUNOMIDE
  38. LEFLUNOMIDE [Suspect]
     Active Substance: LEFLUNOMIDE
     Dosage: 20 MG, QD
  39. LEFLUNOMIDE [Suspect]
     Active Substance: LEFLUNOMIDE
  40. LEFLUNOMIDE [Suspect]
     Active Substance: LEFLUNOMIDE
  41. LEFLUNOMIDE [Suspect]
     Active Substance: LEFLUNOMIDE
  42. LEFLUNOMIDE [Suspect]
     Active Substance: LEFLUNOMIDE
  43. ERELZI [Suspect]
     Active Substance: ETANERCEPT-SZZS
     Indication: Product used for unknown indication
  44. ERELZI [Suspect]
     Active Substance: ETANERCEPT-SZZS
  45. METHOTREXATE [Suspect]
     Active Substance: METHOTREXATE
     Indication: Rheumatoid arthritis
     Dosage: 25 MG, BID (2 EVERY 1 DAY)
     Route: 048
  46. METHOTREXATE [Suspect]
     Active Substance: METHOTREXATE
     Route: 058
  47. OXYCODONE TEREPHTHALATE [Suspect]
     Active Substance: OXYCODONE TEREPHTHALATE
     Indication: Product used for unknown indication
  48. OXYCODONE TEREPHTHALATE [Suspect]
     Active Substance: OXYCODONE TEREPHTHALATE
  49. CELEBREX [Suspect]
     Active Substance: CELECOXIB
     Indication: Product used for unknown indication
     Dosage: 1 *ANTI-XA IU/ML, QD (1DF, QD)
  50. CELEBREX [Suspect]
     Active Substance: CELECOXIB
     Dosage: 2 DOSAGE FORM, QD (*ANTI-XA IU/ML)
     Route: 048
  51. CERTOLIZUMAB PEGOL [Suspect]
     Active Substance: CERTOLIZUMAB PEGOL
     Indication: Product used for unknown indication
  52. CERTOLIZUMAB PEGOL [Suspect]
     Active Substance: CERTOLIZUMAB PEGOL
  53. TOCILIZUMAB [Suspect]
     Active Substance: TOCILIZUMAB
     Indication: Rheumatoid arthritis
     Route: 050
  54. TOCILIZUMAB [Suspect]
     Active Substance: TOCILIZUMAB
     Route: 042
  55. TOCILIZUMAB [Suspect]
     Active Substance: TOCILIZUMAB
     Route: 050
  56. TOCILIZUMAB [Suspect]
     Active Substance: TOCILIZUMAB
     Route: 058
  57. CORTISONE ACETATE [Suspect]
     Active Substance: CORTISONE ACETATE
     Indication: Rheumatoid arthritis
     Route: 050
  58. CORTISONE ACETATE [Suspect]
     Active Substance: CORTISONE ACETATE
     Route: 048
  59. CORTISONE ACETATE [Suspect]
     Active Substance: CORTISONE ACETATE
  60. CORTISONE ACETATE [Suspect]
     Active Substance: CORTISONE ACETATE
     Route: 050
  61. FLUMETHASONE PIVALATE [Suspect]
     Active Substance: FLUMETHASONE PIVALATE
     Indication: Product used for unknown indication
  62. FLUMETHASONE PIVALATE [Suspect]
     Active Substance: FLUMETHASONE PIVALATE
  63. FOSAMAX [Suspect]
     Active Substance: ALENDRONATE SODIUM
     Indication: Rheumatoid arthritis
     Route: 050
  64. FOSAMAX [Suspect]
     Active Substance: ALENDRONATE SODIUM
     Route: 048
  65. FOSAMAX [Suspect]
     Active Substance: ALENDRONATE SODIUM
     Route: 050
  66. FOSAMAX [Suspect]
     Active Substance: ALENDRONATE SODIUM
     Route: 058
  67. CIMZIA [Suspect]
     Active Substance: CERTOLIZUMAB PEGOL
     Indication: Rheumatoid arthritis
     Route: 058
  68. CIMZIA [Suspect]
     Active Substance: CERTOLIZUMAB PEGOL
     Indication: Psoriasis
     Route: 050
  69. CIMZIA [Suspect]
     Active Substance: CERTOLIZUMAB PEGOL
  70. CIMZIA [Suspect]
     Active Substance: CERTOLIZUMAB PEGOL
  71. CIMZIA [Suspect]
     Active Substance: CERTOLIZUMAB PEGOL
     Route: 058
  72. CIMZIA [Suspect]
     Active Substance: CERTOLIZUMAB PEGOL
  73. CIMZIA [Suspect]
     Active Substance: CERTOLIZUMAB PEGOL
  74. RITUXIMAB [Suspect]
     Active Substance: RITUXIMAB
     Indication: Rheumatoid arthritis
  75. RITUXIMAB [Suspect]
     Active Substance: RITUXIMAB
  76. RITUXIMAB [Suspect]
     Active Substance: RITUXIMAB
  77. RITUXIMAB [Suspect]
     Active Substance: RITUXIMAB
  78. RITUXIMAB [Suspect]
     Active Substance: RITUXIMAB
     Route: 050
  79. RITUXIMAB [Suspect]
     Active Substance: RITUXIMAB
     Route: 058
  80. RITUXIMAB [Suspect]
     Active Substance: RITUXIMAB
  81. RITUXIMAB [Suspect]
     Active Substance: RITUXIMAB
     Route: 042
  82. RITUXIMAB [Suspect]
     Active Substance: RITUXIMAB
     Route: 050
  83. ALENDRONATE SODIUM [Suspect]
     Active Substance: ALENDRONATE SODIUM
     Indication: Rheumatoid arthritis
  84. ALENDRONATE SODIUM [Suspect]
     Active Substance: ALENDRONATE SODIUM
  85. TOFACITINIB [Suspect]
     Active Substance: TOFACITINIB
     Indication: Product used for unknown indication
     Dosage: 5 MG, BID
  86. TOFACITINIB [Suspect]
     Active Substance: TOFACITINIB
     Dosage: 5 MG, BID
  87. ENBREL [Suspect]
     Active Substance: ETANERCEPT
     Indication: Rheumatoid arthritis
     Route: 058
  88. ENBREL [Suspect]
     Active Substance: ETANERCEPT
     Route: 050
  89. ENBREL [Suspect]
     Active Substance: ETANERCEPT
     Route: 058
  90. XELJANZ [Suspect]
     Active Substance: TOFACITINIB CITRATE
     Indication: Rheumatoid arthritis
     Dosage: 5 MG, BID (2 EVERY 1 DAY)
  91. XELJANZ [Suspect]
     Active Substance: TOFACITINIB CITRATE
  92. XELJANZ [Suspect]
     Active Substance: TOFACITINIB CITRATE
  93. XELJANZ [Suspect]
     Active Substance: TOFACITINIB CITRATE
  94. OXYCODONE [Suspect]
     Active Substance: OXYCODONE
     Indication: Product used for unknown indication
  95. OXYCODONE [Suspect]
     Active Substance: OXYCODONE
  96. OXYCODONE [Suspect]
     Active Substance: OXYCODONE
  97. OXYCODONE [Suspect]
     Active Substance: OXYCODONE
  98. TUMS ULTRA [Suspect]
     Active Substance: CALCIUM CARBONATE
     Indication: Product used for unknown indication
  99. TUMS ULTRA [Suspect]
     Active Substance: CALCIUM CARBONATE
  100. HYDROXYCHLOROQUINE SULFATE [Suspect]
     Active Substance: HYDROXYCHLOROQUINE SULFATE
     Indication: Rheumatoid arthritis
     Dosage: UNK UNK, QD
     Route: 048
  101. HYDROXYCHLOROQUINE SULFATE [Suspect]
     Active Substance: HYDROXYCHLOROQUINE SULFATE
     Dosage: 400 MG, QD
     Route: 048
  102. HYDROXYCHLOROQUINE SULFATE [Suspect]
     Active Substance: HYDROXYCHLOROQUINE SULFATE
     Route: 050
  103. HYDROXYCHLOROQUINE SULFATE [Suspect]
     Active Substance: HYDROXYCHLOROQUINE SULFATE
     Route: 048
  104. VITAMIN C [Suspect]
     Active Substance: ASCORBIC ACID
     Indication: Product used for unknown indication
  105. VITAMIN C [Suspect]
     Active Substance: ASCORBIC ACID
  106. PREDNISONE [Suspect]
     Active Substance: PREDNISONE
     Indication: Rheumatoid arthritis
     Route: 048
  107. PREDNISONE [Suspect]
     Active Substance: PREDNISONE
     Route: 048
  108. PREDNISONE [Suspect]
     Active Substance: PREDNISONE
     Route: 050
  109. PREDNISONE [Suspect]
     Active Substance: PREDNISONE
     Route: 048
  110. VOLTAROL [Suspect]
     Active Substance: DICLOFENAC SODIUM
     Indication: Product used for unknown indication
  111. CIMZIA [Suspect]
     Active Substance: CERTOLIZUMAB PEGOL
     Indication: Psoriasis
     Route: 058
  112. CIMZIA [Suspect]
     Active Substance: CERTOLIZUMAB PEGOL
     Indication: Rheumatoid arthritis
  113. XELJANZ [Suspect]
     Active Substance: TOFACITINIB CITRATE
     Indication: Rheumatoid arthritis
     Dosage: 5 MG, BID (2 EVERY 1 DAY)
  114. DESOXIMETASONE [Suspect]
     Active Substance: DESOXIMETASONE
     Indication: Rheumatoid arthritis
  115. DESOXIMETASONE [Suspect]
     Active Substance: DESOXIMETASONE
     Route: 050
  116. DESOXIMETASONE [Suspect]
     Active Substance: DESOXIMETASONE
     Route: 048
  117. DESOXIMETASONE [Suspect]
     Active Substance: DESOXIMETASONE
     Route: 050
  118. DESOXIMETASONE [Suspect]
     Active Substance: DESOXIMETASONE
  119. DESOXIMETASONE [Suspect]
     Active Substance: DESOXIMETASONE
  120. LEFLUNOMIDE [Suspect]
     Active Substance: LEFLUNOMIDE
     Indication: Rheumatoid arthritis
  121. HUMIRA [Suspect]
     Active Substance: ADALIMUMAB
     Indication: Rheumatoid arthritis
     Route: 050
  122. HUMIRA [Suspect]
     Active Substance: ADALIMUMAB
     Route: 058
  123. HUMIRA [Suspect]
     Active Substance: ADALIMUMAB
     Route: 058
  124. HUMIRA [Suspect]
     Active Substance: ADALIMUMAB
     Route: 050
  125. ORENCIA [Suspect]
     Active Substance: ABATACEPT
     Indication: Rheumatoid arthritis
  126. ORENCIA [Suspect]
     Active Substance: ABATACEPT
     Route: 058
  127. ORENCIA [Suspect]
     Active Substance: ABATACEPT
     Route: 050
  128. ORENCIA [Suspect]
     Active Substance: ABATACEPT
     Route: 050
  129. ORENCIA [Suspect]
     Active Substance: ABATACEPT
     Route: 050
  130. ORENCIA [Suspect]
     Active Substance: ABATACEPT
     Route: 050
  131. ORENCIA [Suspect]
     Active Substance: ABATACEPT
     Route: 050
  132. ORENCIA [Suspect]
     Active Substance: ABATACEPT
     Route: 050
  133. COSENTYX [Suspect]
     Active Substance: SECUKINUMAB
     Indication: Psoriatic arthropathy
  134. COSENTYX [Suspect]
     Active Substance: SECUKINUMAB
  135. COSENTYX [Suspect]
     Active Substance: SECUKINUMAB
  136. REMICADE [Suspect]
     Active Substance: INFLIXIMAB
     Indication: Rheumatoid arthritis
     Route: 050
  137. REMICADE [Suspect]
     Active Substance: INFLIXIMAB
     Route: 042
  138. FOLIC ACID [Suspect]
     Active Substance: FOLIC ACID
     Indication: Rheumatoid arthritis
  139. HUMIRA [Suspect]
     Active Substance: ADALIMUMAB
     Indication: Rheumatoid arthritis
     Route: 058
  140. INFLIXIMAB [Suspect]
     Active Substance: INFLIXIMAB
     Indication: Rheumatoid arthritis
     Route: 050
  141. INFLIXIMAB [Suspect]
     Active Substance: INFLIXIMAB
     Route: 042
  142. CALCIUM GLUCONATE [Concomitant]
     Active Substance: CALCIUM GLUCONATE
     Indication: Product used for unknown indication
  143. CALCIUM GLUCONATE [Concomitant]
     Active Substance: CALCIUM GLUCONATE
  144. CETIRIZINE [Suspect]
     Active Substance: CETIRIZINE HYDROCHLORIDE
     Indication: Off label use
     Route: 048
  145. CETIRIZINE [Suspect]
     Active Substance: CETIRIZINE HYDROCHLORIDE
     Indication: Rheumatoid arthritis
  146. CETIRIZINE [Suspect]
     Active Substance: CETIRIZINE HYDROCHLORIDE
     Dosage: 10 MG, QD
     Route: 048
  147. CETIRIZINE [Suspect]
     Active Substance: CETIRIZINE HYDROCHLORIDE
     Route: 048
  148. CETIRIZINE [Suspect]
     Active Substance: CETIRIZINE HYDROCHLORIDE
  149. CETIRIZINE [Suspect]
     Active Substance: CETIRIZINE HYDROCHLORIDE
  150. PSEUDOEPHEDRINE HYDROCHLORIDE [Suspect]
     Active Substance: PSEUDOEPHEDRINE HYDROCHLORIDE
     Indication: Rheumatoid arthritis
  151. PSEUDOEPHEDRINE HYDROCHLORIDE [Suspect]
     Active Substance: PSEUDOEPHEDRINE HYDROCHLORIDE
  152. PSEUDOEPHEDRINE HYDROCHLORIDE [Suspect]
     Active Substance: PSEUDOEPHEDRINE HYDROCHLORIDE
  153. PSEUDOEPHEDRINE HYDROCHLORIDE [Suspect]
     Active Substance: PSEUDOEPHEDRINE HYDROCHLORIDE
  154. HYDROCORTISONE [Suspect]
     Active Substance: HYDROCORTISONE
     Indication: Rheumatoid arthritis
     Route: 050
  155. HYDROCORTISONE [Suspect]
     Active Substance: HYDROCORTISONE
     Route: 058
  156. PHTHALYLSULFATHIAZOLE [Suspect]
     Active Substance: PHTHALYLSULFATHIAZOLE
     Indication: Rheumatoid arthritis
     Route: 050
  157. PHTHALYLSULFATHIAZOLE [Suspect]
     Active Substance: PHTHALYLSULFATHIAZOLE
     Dosage: 1000 MG, BID (2 EVERY 1 DAY)
     Route: 048
  158. PHTHALYLSULFATHIAZOLE [Suspect]
     Active Substance: PHTHALYLSULFATHIAZOLE
     Route: 050
  159. PHTHALYLSULFATHIAZOLE [Suspect]
     Active Substance: PHTHALYLSULFATHIAZOLE
     Route: 042
  160. PHTHALYLSULFATHIAZOLE [Suspect]
     Active Substance: PHTHALYLSULFATHIAZOLE
     Route: 048
  161. PHTHALYLSULFATHIAZOLE [Suspect]
     Active Substance: PHTHALYLSULFATHIAZOLE
     Dosage: 1000 MG, BID (2 EVERY 1 DAY)
     Route: 050
  162. PHTHALYLSULFATHIAZOLE [Suspect]
     Active Substance: PHTHALYLSULFATHIAZOLE
     Route: 058
  163. CETIRIZINE HYDROCHLORIDE [Suspect]
     Active Substance: CETIRIZINE HYDROCHLORIDE
     Indication: Off label use
     Dosage: 10 MG, QD, DOSE FORM: SYRUP
  164. CETIRIZINE HYDROCHLORIDE [Suspect]
     Active Substance: CETIRIZINE HYDROCHLORIDE
     Indication: Rheumatoid arthritis
  165. CETIRIZINE HYDROCHLORIDE [Suspect]
     Active Substance: CETIRIZINE HYDROCHLORIDE
     Route: 050
  166. CETIRIZINE HYDROCHLORIDE [Suspect]
     Active Substance: CETIRIZINE HYDROCHLORIDE
  167. ACETAMINOPHEN [Concomitant]
     Active Substance: ACETAMINOPHEN
     Indication: Rheumatoid arthritis
  168. ACETAMINOPHEN [Concomitant]
     Active Substance: ACETAMINOPHEN
  169. ACETAMINOPHEN [Concomitant]
     Active Substance: ACETAMINOPHEN
  170. ACETAMINOPHEN [Concomitant]
     Active Substance: ACETAMINOPHEN
     Route: 048
  171. ACETAMINOPHEN AND CODEINE [Suspect]
     Active Substance: ACETAMINOPHEN\CODEINE PHOSPHATE
     Indication: Product used for unknown indication
  172. ACETAMINOPHEN AND CODEINE [Suspect]
     Active Substance: ACETAMINOPHEN\CODEINE PHOSPHATE
  173. METHOTREXATE SODIUM [Suspect]
     Active Substance: METHOTREXATE SODIUM
     Indication: Rheumatoid arthritis
     Dosage: 25 MG (1 EVERY 1 WEEK)
     Route: 048
  174. METHOTREXATE SODIUM [Suspect]
     Active Substance: METHOTREXATE SODIUM
     Dosage: 20 MG, QD
     Route: 048
  175. METHOTREXATE SODIUM [Suspect]
     Active Substance: METHOTREXATE SODIUM
     Dosage: 25 MG (1 EVERY 1 WEEK)
  176. METHOTREXATE SODIUM [Suspect]
     Active Substance: METHOTREXATE SODIUM
     Dosage: 1 G, BID
     Route: 050
  177. METHOTREXATE SODIUM [Suspect]
     Active Substance: METHOTREXATE SODIUM
     Dosage: 1 G, BID (2 EVERY 1 DAY)
     Route: 048
  178. PREDNISONE [Suspect]
     Active Substance: PREDNISONE
     Indication: Rheumatoid arthritis
     Route: 048
  179. PREDNISONE [Suspect]
     Active Substance: PREDNISONE
  180. PREDNISONE [Suspect]
     Active Substance: PREDNISONE
  181. PREDNISONE [Suspect]
     Active Substance: PREDNISONE
  182. PREDNISONE [Suspect]
     Active Substance: PREDNISONE
     Route: 048
  183. CODEINE [Concomitant]
     Active Substance: CODEINE
     Indication: Product used for unknown indication
  184. CODEINE [Concomitant]
     Active Substance: CODEINE
  185. QUETIAPINE [Concomitant]
     Active Substance: QUETIAPINE
     Indication: Product used for unknown indication
  186. QUETIAPINE [Concomitant]
     Active Substance: QUETIAPINE
  187. ACTEMRA [Suspect]
     Active Substance: TOCILIZUMAB
     Indication: Rheumatoid arthritis
     Route: 050
  188. ACTEMRA [Suspect]
     Active Substance: TOCILIZUMAB
  189. ACTEMRA [Suspect]
     Active Substance: TOCILIZUMAB
     Route: 042
  190. ACTEMRA [Suspect]
     Active Substance: TOCILIZUMAB
  191. ACTEMRA [Suspect]
     Active Substance: TOCILIZUMAB
     Route: 050
  192. ACTEMRA [Suspect]
     Active Substance: TOCILIZUMAB
     Route: 050
  193. ACTEMRA [Suspect]
     Active Substance: TOCILIZUMAB
     Route: 050
  194. ACTEMRA [Suspect]
     Active Substance: TOCILIZUMAB
     Route: 050
  195. ACTEMRA [Suspect]
     Active Substance: TOCILIZUMAB
     Route: 050
  196. ORENCIA [Suspect]
     Active Substance: ABATACEPT
     Indication: Rheumatoid arthritis
  197. ORENCIA [Suspect]
     Active Substance: ABATACEPT
     Route: 058
  198. ORENCIA [Suspect]
     Active Substance: ABATACEPT
     Route: 042
  199. ORENCIA [Suspect]
     Active Substance: ABATACEPT
  200. ORENCIA [Suspect]
     Active Substance: ABATACEPT
     Route: 042
  201. FOSAMAX [Suspect]
     Active Substance: ALENDRONATE SODIUM
     Indication: Rheumatoid arthritis
     Route: 058
  202. APREMILAST [Suspect]
     Active Substance: APREMILAST
     Indication: Product used for unknown indication
     Dosage: 3 MG, BID (2 EVERY 1 DAYS)
  203. APREMILAST [Suspect]
     Active Substance: APREMILAST
     Dosage: 3 MG, BID (2 EVERY 1 DAYS)
  204. CETIRIZINE HYDROCHLORIDE [Suspect]
     Active Substance: CETIRIZINE HYDROCHLORIDE
     Indication: Rheumatoid arthritis
  205. CETIRIZINE HYDROCHLORIDE [Suspect]
     Active Substance: CETIRIZINE HYDROCHLORIDE
     Indication: Off label use
     Dosage: 10 MG, QD
  206. CETIRIZINE HYDROCHLORIDE [Suspect]
     Active Substance: CETIRIZINE HYDROCHLORIDE
  207. CETIRIZINE HYDROCHLORIDE [Suspect]
     Active Substance: CETIRIZINE HYDROCHLORIDE
     Route: 048
  208. NAPROXEN SODIUM [Suspect]
     Active Substance: NAPROXEN SODIUM
     Indication: Product used for unknown indication
  209. SULFASALAZINE [Suspect]
     Active Substance: SULFASALAZINE
     Indication: Rheumatoid arthritis
  210. SULFASALAZINE [Suspect]
     Active Substance: SULFASALAZINE
     Dosage: 1000 MG, BID (2 EVERY 1 DAY)
     Route: 048
  211. SULFASALAZINE [Suspect]
     Active Substance: SULFASALAZINE
     Dosage: 1000 MG, BID (2 EVERY 1 DAY)
     Route: 050
  212. SULFASALAZINE [Suspect]
     Active Substance: SULFASALAZINE
     Dosage: UNK, BID (2 EVERY 1 DAY)
     Route: 048
  213. SULFASALAZINE [Suspect]
     Active Substance: SULFASALAZINE
     Dosage: 300 MG, QD
  214. SULFASALAZINE [Suspect]
     Active Substance: SULFASALAZINE
     Dosage: 2 G, QD
     Route: 048
  215. SULFASALAZINE [Suspect]
     Active Substance: SULFASALAZINE
  216. SULFASALAZINE [Suspect]
     Active Substance: SULFASALAZINE
     Dosage: 1 DF, BID (2 EVERY 1 DAY)
     Route: 048
  217. SULFASALAZINE [Suspect]
     Active Substance: SULFASALAZINE
     Dosage: 2 G, QD
     Route: 050
  218. SULFASALAZINE [Suspect]
     Active Substance: SULFASALAZINE
  219. SULFASALAZINE [Suspect]
     Active Substance: SULFASALAZINE
     Dosage: 1 DOSAGE FORM, BID (2 EVERY 1 DAY)
     Route: 050
  220. SULFASALAZINE [Suspect]
     Active Substance: SULFASALAZINE
     Dosage: 1 G, BID(2 EVERY 1 DAY)
     Route: 048
  221. SULFASALAZINE [Suspect]
     Active Substance: SULFASALAZINE
     Dosage: UNK, BID (2 EVERY 1 DAY)
     Route: 050
  222. SULFASALAZINE [Suspect]
     Active Substance: SULFASALAZINE
     Route: 048
  223. SULFASALAZINE [Suspect]
     Active Substance: SULFASALAZINE
     Route: 048
  224. SULFASALAZINE [Suspect]
     Active Substance: SULFASALAZINE
     Dosage: 2 G, QD
     Route: 048
  225. SULFASALAZINE [Suspect]
     Active Substance: SULFASALAZINE
     Route: 048
  226. MAGNESIUM CITRATE [Suspect]
     Active Substance: MAGNESIUM CITRATE
     Indication: Product used for unknown indication
  227. MAGNESIUM CITRATE [Suspect]
     Active Substance: MAGNESIUM CITRATE
  228. NAPROXEN [Suspect]
     Active Substance: NAPROXEN
     Indication: Product used for unknown indication
  229. ACTEMRA [Suspect]
     Active Substance: TOCILIZUMAB
     Indication: Rheumatoid arthritis
     Route: 042
  230. ACTEMRA [Suspect]
     Active Substance: TOCILIZUMAB
     Route: 058
  231. ACTEMRA [Suspect]
     Active Substance: TOCILIZUMAB
     Route: 042
  232. ACTEMRA [Suspect]
     Active Substance: TOCILIZUMAB
     Route: 042
  233. ACTEMRA [Suspect]
     Active Substance: TOCILIZUMAB
     Route: 042
  234. ACTEMRA [Suspect]
     Active Substance: TOCILIZUMAB
     Route: 042
  235. IBUPROFEN [Concomitant]
     Active Substance: IBUPROFEN
     Indication: Product used for unknown indication
  236. IBUPROFEN [Concomitant]
     Active Substance: IBUPROFEN
  237. HYDROXYCHLOROQUINE [Suspect]
     Active Substance: HYDROXYCHLOROQUINE
     Indication: Rheumatoid arthritis
     Dosage: 40 MG, QD
     Route: 048
  238. HYDROXYCHLOROQUINE [Suspect]
     Active Substance: HYDROXYCHLOROQUINE
     Route: 048
  239. HYDROXYCHLOROQUINE [Suspect]
     Active Substance: HYDROXYCHLOROQUINE
     Dosage: UNK UNK, QD
     Route: 050
  240. HYDROXYCHLOROQUINE [Suspect]
     Active Substance: HYDROXYCHLOROQUINE
     Dosage: 400 MG, QD
     Route: 048
  241. HYDROXYCHLOROQUINE [Suspect]
     Active Substance: HYDROXYCHLOROQUINE
     Dosage: 400 MG, QD
  242. HYDROXYCHLOROQUINE [Suspect]
     Active Substance: HYDROXYCHLOROQUINE
     Route: 050
  243. HYDROXYCHLOROQUINE [Suspect]
     Active Substance: HYDROXYCHLOROQUINE
     Route: 048
  244. HYDROXYCHLOROQUINE [Suspect]
     Active Substance: HYDROXYCHLOROQUINE
     Dosage: UNK UNK, QD
  245. LISINOPRIL [Concomitant]
     Active Substance: LISINOPRIL
     Indication: Product used for unknown indication
  246. LISINOPRIL [Concomitant]
     Active Substance: LISINOPRIL
  247. CAFFEINE CITRATE [Concomitant]
     Active Substance: CAFFEINE CITRATE
     Indication: Product used for unknown indication
  248. CAFFEINE CITRATE [Concomitant]
     Active Substance: CAFFEINE CITRATE
  249. CETIRIZINE HYDROCHLORIDE\PSEUDOEPHEDRINE HYDROCHLORIDE [Suspect]
     Active Substance: CETIRIZINE HYDROCHLORIDE\PSEUDOEPHEDRINE HYDROCHLORIDE
     Indication: Product used for unknown indication
  250. PREDNISONE [Suspect]
     Active Substance: PREDNISONE
     Indication: Rheumatoid arthritis
     Route: 048
  251. RISEDRONATE SODIUM [Concomitant]
     Active Substance: RISEDRONATE SODIUM
     Indication: Product used for unknown indication
  252. PANTOPRAZOLE [Concomitant]
     Active Substance: PANTOPRAZOLE
     Indication: Product used for unknown indication
  253. PANTOPRAZOLE [Concomitant]
     Active Substance: PANTOPRAZOLE
  254. CETIRIZINE HYDROCHLORIDE [Suspect]
     Active Substance: CETIRIZINE HYDROCHLORIDE
     Indication: Rheumatoid arthritis
  255. CETIRIZINE HYDROCHLORIDE [Suspect]
     Active Substance: CETIRIZINE HYDROCHLORIDE
     Indication: Off label use
  256. CETIRIZINE HYDROCHLORIDE [Suspect]
     Active Substance: CETIRIZINE HYDROCHLORIDE
  257. CETIRIZINE HYDROCHLORIDE [Suspect]
     Active Substance: CETIRIZINE HYDROCHLORIDE
  258. CELECOXIB [Suspect]
     Active Substance: CELECOXIB
     Indication: Product used for unknown indication
     Dosage: UNK, QD
     Route: 050
  259. COSENTYX [Suspect]
     Active Substance: SECUKINUMAB
     Indication: Psoriatic arthropathy
  260. ALENDRONIC ACID [Suspect]
     Active Substance: ALENDRONIC ACID
     Indication: Rheumatoid arthritis
  261. ALENDRONIC ACID [Suspect]
     Active Substance: ALENDRONIC ACID
  262. CETIRIZINE HYDROCHLORIDE [Suspect]
     Active Substance: CETIRIZINE HYDROCHLORIDE
     Indication: Rheumatoid arthritis
     Dosage: 10 MG, QD
     Route: 048
  263. CETIRIZINE HYDROCHLORIDE [Suspect]
     Active Substance: CETIRIZINE HYDROCHLORIDE
     Indication: Off label use
     Route: 048
  264. CETIRIZINE HYDROCHLORIDE [Suspect]
     Active Substance: CETIRIZINE HYDROCHLORIDE
     Route: 050
  265. CETIRIZINE HYDROCHLORIDE [Suspect]
     Active Substance: CETIRIZINE HYDROCHLORIDE
     Route: 048
  266. CETIRIZINE HYDROCHLORIDE [Suspect]
     Active Substance: CETIRIZINE HYDROCHLORIDE
  267. CETIRIZINE HYDROCHLORIDE [Suspect]
     Active Substance: CETIRIZINE HYDROCHLORIDE
  268. CETIRIZINE HYDROCHLORIDE [Suspect]
     Active Substance: CETIRIZINE HYDROCHLORIDE
  269. FOLIC ACID [Suspect]
     Active Substance: FOLIC ACID
     Indication: Rheumatoid arthritis
     Route: 050
  270. FOLIC ACID [Suspect]
     Active Substance: FOLIC ACID
  271. FOLIC ACID [Suspect]
     Active Substance: FOLIC ACID
  272. FOLIC ACID [Suspect]
     Active Substance: FOLIC ACID
     Route: 050
  273. FOLIC ACID [Suspect]
     Active Substance: FOLIC ACID
  274. FOLIC ACID [Suspect]
     Active Substance: FOLIC ACID
     Route: 050
  275. FOLIC ACID [Suspect]
     Active Substance: FOLIC ACID
  276. FOLIC ACID [Suspect]
     Active Substance: FOLIC ACID
     Route: 050
  277. TUMS [Suspect]
     Active Substance: CALCIUM CARBONATE
     Indication: Product used for unknown indication
  278. METHOTREXATE SODIUM [Suspect]
     Active Substance: METHOTREXATE SODIUM
     Indication: Rheumatoid arthritis
     Dosage: 20 MG, QD
     Route: 048
  279. METHOTREXATE SODIUM [Suspect]
     Active Substance: METHOTREXATE SODIUM
     Dosage: 25 MG, QW
  280. METHOTREXATE SODIUM [Suspect]
     Active Substance: METHOTREXATE SODIUM
     Dosage: 25 MG, QW
     Route: 048
  281. METHOTREXATE SODIUM [Suspect]
     Active Substance: METHOTREXATE SODIUM
     Dosage: 1 G (1 EVERY .5 DAYS)
     Route: 048
  282. DIETARY SUPPLEMENT\MINERALS\VITAMINS [Suspect]
     Active Substance: DIETARY SUPPLEMENT\MINERALS\VITAMINS
     Indication: Product used for unknown indication
  283. DIETARY SUPPLEMENT\MINERALS\VITAMINS [Suspect]
     Active Substance: DIETARY SUPPLEMENT\MINERALS\VITAMINS
  284. ACETAMINOPHEN AND CODEINE [Suspect]
     Active Substance: ACETAMINOPHEN\CODEINE PHOSPHATE
     Indication: Product used for unknown indication
  285. ACETAMINOPHEN AND CODEINE [Suspect]
     Active Substance: ACETAMINOPHEN\CODEINE PHOSPHATE
  286. DESOXIMETASONE [Suspect]
     Active Substance: DESOXIMETASONE
     Indication: Rheumatoid arthritis
  287. DESOXIMETASONE [Suspect]
     Active Substance: DESOXIMETASONE
  288. DESOXIMETASONE [Suspect]
     Active Substance: DESOXIMETASONE
  289. DESOXIMETASONE [Suspect]
     Active Substance: DESOXIMETASONE
     Route: 048
  290. QUETIAPINE FUMARATE [Concomitant]
     Active Substance: QUETIAPINE FUMARATE
     Indication: Product used for unknown indication
  291. APREMILAST [Suspect]
     Active Substance: APREMILAST
     Indication: Product used for unknown indication
  292. DICLOFENAC SODIUM [Suspect]
     Active Substance: DICLOFENAC SODIUM
     Indication: Product used for unknown indication
  293. LEFLUNOMIDE [Suspect]
     Active Substance: LEFLUNOMIDE
     Indication: Rheumatoid arthritis
  294. LEFLUNOMIDE [Suspect]
     Active Substance: LEFLUNOMIDE
  295. LEFLUNOMIDE [Suspect]
     Active Substance: LEFLUNOMIDE
  296. LEFLUNOMIDE [Suspect]
     Active Substance: LEFLUNOMIDE
  297. HYDROCORTISONE [Suspect]
     Active Substance: HYDROCORTISONE
     Indication: Rheumatoid arthritis
     Route: 058
  298. TRUXIMA [Suspect]
     Active Substance: RITUXIMAB-ABBS
     Indication: Rheumatoid arthritis
  299. TRUXIMA [Suspect]
     Active Substance: RITUXIMAB-ABBS
     Route: 058
  300. TRUXIMA [Suspect]
     Active Substance: RITUXIMAB-ABBS
  301. TRUXIMA [Suspect]
     Active Substance: RITUXIMAB-ABBS
  302. TRUXIMA [Suspect]
     Active Substance: RITUXIMAB-ABBS
  303. MAGNESIUM [Suspect]
     Active Substance: MAGNESIUM
     Indication: Product used for unknown indication
  304. CAFFEINE [Suspect]
     Active Substance: CAFFEINE
     Indication: Product used for unknown indication
  305. VITAMIN C [Suspect]
     Active Substance: ASCORBIC ACID
  306. VITAMIN C [Suspect]
     Active Substance: ASCORBIC ACID

REACTIONS (20)
  - Epilepsy [Not Recovered/Not Resolved]
  - Malaise [Not Recovered/Not Resolved]
  - Hypoaesthesia [Not Recovered/Not Resolved]
  - Gastrooesophageal reflux disease [Not Recovered/Not Resolved]
  - Swollen joint count increased [Not Recovered/Not Resolved]
  - Rheumatic fever [Not Recovered/Not Resolved]
  - Treatment failure [Not Recovered/Not Resolved]
  - Blepharospasm [Not Recovered/Not Resolved]
  - Migraine [Not Recovered/Not Resolved]
  - Rheumatoid factor positive [Not Recovered/Not Resolved]
  - Product quality issue [Not Recovered/Not Resolved]
  - Drug ineffective [Not Recovered/Not Resolved]
  - Off label use [Not Recovered/Not Resolved]
  - Taste disorder [Not Recovered/Not Resolved]
  - Pain [Not Recovered/Not Resolved]
  - Contraindicated product administered [Not Recovered/Not Resolved]
  - Decreased appetite [Not Recovered/Not Resolved]
  - Product use in unapproved indication [Not Recovered/Not Resolved]
  - Memory impairment [Not Recovered/Not Resolved]
  - Intentional product use issue [Not Recovered/Not Resolved]
